FAERS Safety Report 24687624 (Version 1)
Quarter: 2024Q4

REPORT INFORMATION
  Report Type: Spontaneous
  Country: US (occurrence: US)
  Receive Date: 20241202
  Receipt Date: 20241202
  Transmission Date: 20250114
  Serious: Yes (Hospitalization)
  Sender: MYLAN
  Company Number: US-MYLANLABS-2024M1107305

PATIENT
  Age: 85 Year
  Sex: Female

DRUGS (6)
  1. VANCOMYCIN [Suspect]
     Active Substance: VANCOMYCIN
     Indication: Stenotrophomonas infection
     Dosage: UNK
     Route: 033
  2. VANCOMYCIN [Suspect]
     Active Substance: VANCOMYCIN
     Indication: Peritonitis bacterial
  3. CEFEPIME [Suspect]
     Active Substance: CEFEPIME HYDROCHLORIDE
     Indication: Stenotrophomonas infection
     Dosage: UNK
     Route: 065
  4. CEFEPIME [Suspect]
     Active Substance: CEFEPIME HYDROCHLORIDE
     Indication: Peritonitis bacterial
  5. CEFPODOXIME [Suspect]
     Active Substance: CEFPODOXIME
     Indication: Stenotrophomonas infection
     Dosage: UNK
     Route: 065
  6. CEFPODOXIME [Suspect]
     Active Substance: CEFPODOXIME
     Indication: Peritonitis bacterial

REACTIONS (1)
  - Drug ineffective [Unknown]
